FAERS Safety Report 17938156 (Version 2)
Quarter: 2020Q2

REPORT INFORMATION
  Report Type: Spontaneous
  Country: CA (occurrence: CA)
  Receive Date: 20200624
  Receipt Date: 20200624
  Transmission Date: 20200714
  Serious: Yes (Life-Threatening)
  Sender: FDA-Public Use
  Company Number: CA-ACCORD-186675

PATIENT
  Age: 47 Year
  Sex: Female
  Weight: 82 kg

DRUGS (5)
  1. DIPHENHYDRAMINE. [Concomitant]
     Active Substance: DIPHENHYDRAMINE
  2. PERJETA [Concomitant]
     Active Substance: PERTUZUMAB
     Dosage: STRENGTH: 14ML VIAL - CONCENTRATE SOL,  SOLUTION INTRAVENOUS
  3. PACLITAXEL/PACLITAXEL LIPOSOME [Suspect]
     Active Substance: PACLITAXEL
     Indication: BREAST CANCER
     Dosage: 1 EVERY 1 WEEKS
     Route: 042
  4. RANITIDINE. [Concomitant]
     Active Substance: RANITIDINE
  5. DEXAMETHASONE. [Concomitant]
     Active Substance: DEXAMETHASONE
     Dosage: NOT SPECIFIED

REACTIONS (3)
  - Chest discomfort [Recovered/Resolved]
  - Feeling hot [Recovered/Resolved]
  - Flushing [Recovered/Resolved]
